FAERS Safety Report 15058949 (Version 1)
Quarter: 2018Q2

REPORT INFORMATION
  Report Type: Spontaneous
  Country: US (occurrence: US)
  Receive Date: 20180605
  Receipt Date: 20180605
  Transmission Date: 20180711
  Serious: Yes (Disabling)
  Sender: FDA-Public Use
  Company Number: None

PATIENT
  Age: 42 Year
  Sex: Female
  Weight: 92.25 kg

DRUGS (6)
  1. MEDROL [Concomitant]
     Active Substance: METHYLPREDNISOLONE
  2. CEPHALEXIN. [Concomitant]
     Active Substance: CEPHALEXIN
  3. ALLEGRA D 12HOUR [Concomitant]
  4. ALEVE [Concomitant]
     Active Substance: NAPROXEN SODIUM
  5. MONTELUKAST [Concomitant]
     Active Substance: MONTELUKAST SODIUM
  6. CEPHALEXIN. [Suspect]
     Active Substance: CEPHALEXIN
     Indication: PNEUMONIA
     Dosage: ?          QUANTITY:21 CAPSULE(S);?
     Route: 048
     Dates: start: 20180601, end: 20180605

REACTIONS (2)
  - Back pain [None]
  - Neuralgia [None]

NARRATIVE: CASE EVENT DATE: 20180601
